FAERS Safety Report 18200636 (Version 2)
Quarter: 2020Q3

REPORT INFORMATION
  Report Type: Spontaneous
  Country: US (occurrence: US)
  Receive Date: 20200827
  Receipt Date: 20200906
  Transmission Date: 20201103
  Serious: Yes (Death, Life-Threatening, Other)
  Sender: FDA-Public Use
  Company Number: US-ROCHE-2664389

PATIENT
  Age: 53 Year
  Sex: Male
  Weight: 91.61 kg

DRUGS (16)
  1. ACTEMRA [Suspect]
     Active Substance: TOCILIZUMAB
     Indication: COVID-19
     Route: 042
     Dates: start: 20200708, end: 20200708
  2. REMDESIVIR. [Suspect]
     Active Substance: REMDESIVIR
     Indication: COVID-19
     Dosage: QD FOR 4 DAYS
     Route: 040
     Dates: start: 20200709, end: 20200713
  3. DECADRON [Concomitant]
     Active Substance: DEXAMETHASONE
     Dosage: 8 JUL 2020 , 22 JUL 2020
  4. ALBUTEROL SULFATE HFA [Concomitant]
     Active Substance: ALBUTEROL SULFATE
  5. DIPRIVAN [Suspect]
     Active Substance: PROPOFOL
     Indication: SEDATION
     Dosage: FOR 4 DAYS
     Route: 042
     Dates: start: 20200708, end: 20200712
  6. NORMAL SALINE [Concomitant]
     Active Substance: SODIUM CHLORIDE
  7. MORPHINE [Concomitant]
     Active Substance: MORPHINE
     Dosage: 08 JUL 2020, 26 JUL 2020
  8. TYLENOL [Concomitant]
     Active Substance: ACETAMINOPHEN
     Dosage: 08 JUL 2020, 13 JUL 2020
  9. LOVENOX [Suspect]
     Active Substance: ENOXAPARIN SODIUM
     Indication: THROMBOSIS PROPHYLAXIS
     Dosage: FOR 10 DAYS
     Route: 058
     Dates: start: 20200708, end: 20200718
  10. ATIVAN [Concomitant]
     Active Substance: LORAZEPAM
     Dosage: 11 JUL 2020,1 AUG 2020
  11. HUMULIN R [Concomitant]
     Active Substance: INSULIN HUMAN
     Dosage: 10 JUL 2020, 03 AUG 2020
  12. BENADRYL [Concomitant]
     Active Substance: DIPHENHYDRAMINE HYDROCHLORIDE
     Dosage: 08?JUL?2020
  13. VECURONIUM [Concomitant]
     Active Substance: VECURONIUM BROMIDE
     Dosage: 08?JUL?2020
  14. PRECEDEX [Concomitant]
     Active Substance: DEXMEDETOMIDINE HYDROCHLORIDE
  15. GLUCERNA [Concomitant]
     Active Substance: AMINO ACIDS\DEXTROSE\ELECTROLYTES NOS\SOYBEAN OIL\VITAMINS
     Dosage: 10 JUL 2020, 3 AUG 2020
  16. ROCEPHIN [Concomitant]
     Active Substance: CEFTRIAXONE SODIUM
     Dosage: 08 JUL 2020, 12 AUG 2020

REACTIONS (7)
  - Prothrombin time prolonged [Recovered/Resolved]
  - International normalised ratio increased [Recovered/Resolved]
  - Intentional product use issue [Fatal]
  - Off label use [Fatal]
  - Thrombocytopenia [Not Recovered/Not Resolved]
  - Hyperlipidaemia [Unknown]
  - Death [Fatal]

NARRATIVE: CASE EVENT DATE: 20200708
